FAERS Safety Report 24696523 (Version 3)
Quarter: 2025Q1

REPORT INFORMATION
  Report Type: Spontaneous
  Country: US (occurrence: US)
  Receive Date: 20241204
  Receipt Date: 20250102
  Transmission Date: 20250408
  Serious: No
  Sender: BAYER HEALTHCARE PHARMACEUTICALS INC.
  Company Number: US-BAYER-2024A170432

PATIENT
  Age: 64 Year
  Sex: Female

DRUGS (1)
  1. ESTRADIOL [Suspect]
     Active Substance: ESTRADIOL
     Route: 062

REACTIONS (4)
  - Device adhesion issue [None]
  - Wrong technique in product usage process [None]
  - Application site erythema [None]
  - Application site hypersensitivity [None]

NARRATIVE: CASE EVENT DATE: 20241001
